FAERS Safety Report 24187565 (Version 1)
Quarter: 2024Q3

REPORT INFORMATION
  Report Type: Spontaneous
  Country: IN (occurrence: IN)
  Receive Date: 20240808
  Receipt Date: 20240808
  Transmission Date: 20241017
  Serious: Yes (Other)
  Sender: RANBAXY
  Company Number: IN-SUN PHARMACEUTICAL INDUSTRIES LTD-2024R1-460962

PATIENT
  Age: 36 Year
  Sex: Female

DRUGS (1)
  1. TRIAMCINOLONE [Suspect]
     Active Substance: TRIAMCINOLONE
     Indication: Parathyroid tumour benign
     Dosage: UNK (40 MG,4 TIMES AT INTERVALS OF 3 WEEKS)
     Route: 026

REACTIONS (1)
  - Drug ineffective [Unknown]
